FAERS Safety Report 8924019 (Version 1)
Quarter: 2012Q4

REPORT INFORMATION
  Report Type: Spontaneous
  Country: JP (occurrence: None)
  Receive Date: 20121116
  Receipt Date: 20121116
  Transmission Date: 20130627
  Serious: Yes (Other)
  Sender: FDA-Public Use
  Company Number: DSA_60922_2012

PATIENT
  Age: 10 Year
  Sex: Male

DRUGS (2)
  1. ZOVIRAX [Suspect]
     Indication: STEVENS-JOHNSON SYNDROME
     Dosage: (DF)
  2. ACETAMINOPHEN [Suspect]
     Indication: NASOPHARYNGITIS
     Dosage: (DF)

REACTIONS (2)
  - Toxic epidermal necrolysis [None]
  - Stevens-Johnson syndrome [None]
